FAERS Safety Report 8514249-X (Version None)
Quarter: 2012Q2

REPORT INFORMATION
  Report Type: 
  Country: None (occurrence: None)
  Receive Date: 20120406
  Receipt Date: 20111202
  Transmission Date: 20120825
  Serious: Yes (Life-Threatening)
  Sender: FDA-Public Use
  Company Number: US-CYPR-2012-000096

PATIENT
  Sex: Male
  Weight: 107.0489 kg

DRUGS (10)
  1. SIMVASTATIN [Concomitant]
  2. NITROGLYCERIN [Concomitant]
  3. CYPHER STENT [Concomitant]
  4. CLOPIDOGREL [Suspect]
     Indication: ANTIPLATELET THERAPY
     Dosage: (75 MG ORAL)
     Route: 048
     Dates: start: 20110409, end: 20110607
  5. CLOPIDOGREL [Suspect]
     Indication: ANTIPLATELET THERAPY
     Dosage: (75 MG ORAL)
     Route: 048
     Dates: start: 20110701
  6. ASPIRIN [Suspect]
     Indication: CORONARY ARTERY DISEASE
     Dosage: (325 MG ORAL), )   (81 MG ORAL)
     Route: 048
     Dates: start: 20110608
  7. ASPIRIN [Suspect]
     Indication: CORONARY ARTERY DISEASE
     Dosage: (325 MG ORAL), )   (81 MG ORAL)
     Route: 048
     Dates: start: 20091201, end: 20110607
  8. IBUPROFEN [Concomitant]
  9. PROTONIX [Concomitant]
  10. PEPCID [Concomitant]

REACTIONS (1)
  - PULMONARY MASS [None]
